FAERS Safety Report 22623731 (Version 1)
Quarter: 2023Q2

REPORT INFORMATION
  Report Type: Spontaneous
  Country: GB (occurrence: GB)
  Receive Date: 20230621
  Receipt Date: 20230621
  Transmission Date: 20230722
  Serious: Yes (Other)
  Sender: FDA-Public Use
  Company Number: None

PATIENT

DRUGS (24)
  1. ACETAMINOPHEN [Suspect]
     Active Substance: ACETAMINOPHEN
     Indication: Product used for unknown indication
     Route: 048
  2. DILTIAZEM [Concomitant]
     Active Substance: DILTIAZEM
     Dates: start: 20220408
  3. BISACODYL [Concomitant]
     Active Substance: BISACODYL
     Dosage: ONE OR TWO TO BE TAKEN AT NIGHT
     Dates: start: 20160223
  4. CLOPIDOGREL [Concomitant]
     Active Substance: CLOPIDOGREL BISULFATE
     Dates: start: 20220408
  5. CREON [Concomitant]
     Active Substance: PANCRELIPASE AMYLASE\PANCRELIPASE LIPASE\PANCRELIPASE PROTEASE
     Dosage: TAKE TWO TO FOUR WITH MEALS THREE TIME...
     Route: 048
     Dates: start: 20151223
  6. DONEPEZIL HYDROCHLORIDE [Concomitant]
     Active Substance: DONEPEZIL HYDROCHLORIDE
     Route: 048
     Dates: start: 20150202
  7. FOLIC ACID [Concomitant]
     Active Substance: FOLIC ACID
     Dates: start: 20230414
  8. FUROSEMIDE [Concomitant]
     Active Substance: FUROSEMIDE
     Dosage: TWO TO BE TAKEN IN THE MORNING AND TWO ...
     Route: 048
     Dates: start: 20210401
  9. GABAPENTIN [Concomitant]
     Active Substance: GABAPENTIN
     Dates: start: 20140403
  10. GAVISCON ADVANCED [Concomitant]
     Dosage: ONE OR TWO 5ML SPOONFULS TO BE TAKEN AFTER MEAL...
     Route: 048
     Dates: start: 20160202
  11. HYALURONATE SODIUM [Concomitant]
     Active Substance: HYALURONATE SODIUM
     Dosage: INSIDE THE LOWER LID OF BOTH EYE...
     Dates: start: 20220622
  12. ISOSORBIDE MONONITRATE [Concomitant]
     Active Substance: ISOSORBIDE MONONITRATE
     Dosage: MORNING
     Dates: start: 20220316
  13. LACTULOSE [Concomitant]
     Active Substance: LACTULOSE
     Route: 048
     Dates: start: 20220201
  14. LANSOPRAZOLE [Concomitant]
     Active Substance: LANSOPRAZOLE
     Dates: start: 20160208
  15. POLYETHYLENE GLYCOL 3350\POTASSIUM CHLORIDE\SODIUM BICARBONATE\SODIUM [Concomitant]
     Active Substance: POLYETHYLENE GLYCOL 3350\POTASSIUM CHLORIDE\SODIUM BICARBONATE\SODIUM CHLORIDE
     Dosage: DISSOLVE CONTENTS IN HALF A GLASS...
     Dates: start: 20220201, end: 20230516
  16. LEVOTHYROXINE [Concomitant]
     Active Substance: LEVOTHYROXINE
     Dosage: MORNING AT LEAST 30 MINUTE...
     Dates: start: 20190712
  17. METFORMIN [Concomitant]
     Active Substance: METFORMIN HYDROCHLORIDE
     Dosage: WITH MEALS
     Dates: start: 20210705
  18. MORPHINE SULFATE [Concomitant]
     Active Substance: MORPHINE SULFATE
     Dosage: EVERY FOUR TO SIX HOURS (MAXIMUM 6 DOSES ...
     Route: 048
     Dates: start: 20220301
  19. SERTRALINE [Concomitant]
     Active Substance: SERTRALINE HYDROCHLORIDE
     Dates: start: 20190103
  20. SIMVASTATIN [Concomitant]
     Active Substance: SIMVASTATIN
     Dosage: NIGHT
     Dates: start: 20070213
  21. SPIRONOLACTONE [Concomitant]
     Active Substance: SPIRONOLACTONE
     Dosage: MORNING
     Route: 048
     Dates: start: 20220308
  22. LANOLIN\ZINC OXIDE [Concomitant]
     Active Substance: LANOLIN\ZINC OXIDE
     Dosage: USE AS DIRECTED
     Dates: start: 20150519
  23. ACETAMINOPHEN\BENZALKONIUM\DICHLORALPHENAZONE\DIMETHICONE\HYDROCORTISO [Concomitant]
     Active Substance: ACETAMINOPHEN\BENZALKONIUM\DICHLORALPHENAZONE\DIMETHICONE\HYDROCORTISONE\ISOMETHEPTENE\NYSTATIN
     Dates: start: 20230525, end: 20230601
  24. ZEROCREAM [Concomitant]
     Dosage: APPLY TO DRY SKIN AREAS TWO OR THREE TIMES DAIL...
     Route: 062
     Dates: start: 20210416

REACTIONS (1)
  - Constipation [Unknown]
